FAERS Safety Report 9461529 (Version 1)
Quarter: 2013Q3

REPORT INFORMATION
  Report Type: Spontaneous
  Country: US (occurrence: None)
  Receive Date: 20130814
  Receipt Date: 20130814
  Transmission Date: 20140515
  Serious: No
  Sender: FDA-Public Use
  Company Number: None

PATIENT
  Age: 39 Year
  Sex: Female
  Weight: 86.18 kg

DRUGS (5)
  1. ACETAZOLAMIDE [Suspect]
     Indication: BENIGN INTRACRANIAL HYPERTENSION
     Route: 048
     Dates: start: 20130509, end: 20130701
  2. ACETAZOLAMIDE [Suspect]
     Indication: MIGRAINE
     Route: 048
     Dates: start: 20130509, end: 20130701
  3. OMNEPRIZOLE [Concomitant]
  4. PREDNISONE [Concomitant]
  5. POTASSIUM [Concomitant]

REACTIONS (5)
  - Ocular icterus [None]
  - Hepatic enzyme increased [None]
  - Blood bilirubin increased [None]
  - Yellow skin [None]
  - Blood potassium decreased [None]
